FAERS Safety Report 4831158-8 (Version None)
Quarter: 2005Q4

REPORT INFORMATION
  Report Type: 
  Country: None (occurrence: None)
  Receive Date: 20051114
  Receipt Date: 20051028
  Transmission Date: 20060501
  Serious: Yes (Hospitalization, Other)
  Sender: FDA-Public Use
  Company Number: BR-2005-016058

PATIENT
  Age: 47 Year
  Sex: Male

DRUGS (8)
  1. BETASERON [Suspect]
     Indication: RELAPSING-REMITTING MULTIPLE SCLEROSIS
     Dosage: 0.25 ML EVERY 2D, SUBCUTANEOUS
     Route: 058
     Dates: start: 20050621, end: 20050731
  2. BETASERON [Suspect]
     Indication: RELAPSING-REMITTING MULTIPLE SCLEROSIS
     Dosage: 0.25 ML EVERY 2D, SUBCUTANEOUS
     Route: 058
     Dates: start: 20050801, end: 20050823
  3. COPAXONE [Suspect]
     Dosage: SUBCUTANEOUS
     Route: 058
  4. IBUPROFEN [Concomitant]
  5. CYCLOBENZAPRINE HCL [Concomitant]
  6. BACLOFEN [Concomitant]
  7. CARBAMAZEPINE [Concomitant]
  8. FOLIC ACID [Concomitant]

REACTIONS (11)
  - ASTHENIA [None]
  - AZOTAEMIA [None]
  - DECUBITUS ULCER [None]
  - HEPATIC ENZYME INCREASED [None]
  - IMMUNOSUPPRESSION [None]
  - MULTIPLE SCLEROSIS RELAPSE [None]
  - PARAPLEGIA [None]
  - PROGRESSIVE MULTIPLE SCLEROSIS [None]
  - URINARY TRACT INFECTION [None]
  - URINE OUTPUT DECREASED [None]
  - UROSEPSIS [None]
